FAERS Safety Report 10488097 (Version 1)
Quarter: 2014Q4

REPORT INFORMATION
  Report Type: Spontaneous
  Country: BR (occurrence: BR)
  Receive Date: 20141002
  Receipt Date: 20141002
  Transmission Date: 20150528
  Serious: Yes (Other)
  Sender: FDA-Public Use
  Company Number: PHHY2014BR127219

PATIENT
  Age: 49 Year
  Sex: Female

DRUGS (3)
  1. BROMOCRIPTINE [Suspect]
     Active Substance: BROMOCRIPTINE
     Indication: PITUITARY TUMOUR BENIGN
  2. BROMOCRIPTINE [Suspect]
     Active Substance: BROMOCRIPTINE
     Indication: HYPERPROLACTINAEMIA
  3. BROMOCRIPTINE [Suspect]
     Active Substance: BROMOCRIPTINE
     Indication: GALACTORRHOEA
     Dosage: 2.5 MG, UNK

REACTIONS (11)
  - Insulin-like growth factor increased [Unknown]
  - Blood pressure increased [Unknown]
  - Blood glucose increased [Unknown]
  - Foot deformity [Unknown]
  - Skull malformation [Unknown]
  - Nose deformity [Unknown]
  - Macroglossia [Unknown]
  - Limb deformity [Unknown]
  - Finger deformity [Unknown]
  - Acromegaly [Unknown]
  - Macrognathia [Unknown]
